FAERS Safety Report 22847029 (Version 2)
Quarter: 2023Q4

REPORT INFORMATION
  Report Type: Spontaneous
  Country: US (occurrence: US)
  Receive Date: 20230822
  Receipt Date: 20231121
  Transmission Date: 20240110
  Serious: No
  Sender: FDA-Public Use
  Company Number: US-BRISTOL-MYERS SQUIBB COMPANY-2023-117460

PATIENT
  Age: 59 Year
  Sex: Female

DRUGS (2)
  1. OPDIVO [Suspect]
     Active Substance: NIVOLUMAB
     Indication: Metastases to the mediastinum
     Route: 042
     Dates: end: 20230818
  2. YERVOY [Suspect]
     Active Substance: IPILIMUMAB
     Indication: Metastases to the mediastinum
     Dosage: REFER TO NARRATIVEINCLUDECLINICAL
     Route: 042
     Dates: end: 20230818

REACTIONS (1)
  - Off label use [Unknown]
